FAERS Safety Report 8214744-7 (Version None)
Quarter: 2012Q1

REPORT INFORMATION
  Report Type: 
  Country: None (occurrence: None)
  Receive Date: 20120313
  Receipt Date: 20120305
  Transmission Date: 20120608
  Serious: Yes (Death)
  Sender: FDA-Public Use
  Company Number: 2010003382

PATIENT
  Age: 60 Year
  Sex: Male

DRUGS (2)
  1. TARCEVA [Suspect]
     Indication: LUNG ADENOCARCINOMA
     Dosage: 150 MG, UID/QD, ORAL; 75 MG, UID/QD, ORAL
     Route: 048
     Dates: start: 20100725
  2. TARCEVA [Suspect]
     Indication: LUNG ADENOCARCINOMA
     Dosage: 150 MG, UID/QD, ORAL; 75 MG, UID/QD, ORAL
     Route: 048
     Dates: start: 20100727

REACTIONS (2)
  - DERMATITIS ACNEIFORM [None]
  - ERYTHEMA [None]
